FAERS Safety Report 6279197-7 (Version None)
Quarter: 2009Q3

REPORT INFORMATION
  Report Type: 
  Country: None (occurrence: None)
  Receive Date: 20090723
  Receipt Date: 20080801
  Transmission Date: 20100115
  Serious: No
  Sender: FDA-Public Use
  Company Number: US-AMGEN-KDL299109

PATIENT
  Sex: Female

DRUGS (7)
  1. PROCRIT [Suspect]
     Indication: ANAEMIA
     Dates: start: 20080701
  2. GABAPENTIN [Concomitant]
  3. CARVEDILOL [Concomitant]
  4. COZAAR [Concomitant]
  5. POTASSIUM CHLORIDE [Concomitant]
  6. PREDNISONE TAB [Concomitant]
  7. DARVOCET-N 100 [Concomitant]

REACTIONS (3)
  - ABDOMINAL PAIN [None]
  - DIARRHOEA [None]
  - HYPOACUSIS [None]
